FAERS Safety Report 21464162 (Version 1)
Quarter: 2022Q4

REPORT INFORMATION
  Report Type: Spontaneous
  Country: US (occurrence: None)
  Receive Date: 20221017
  Receipt Date: 20221017
  Transmission Date: 20230113
  Serious: Yes (Other)
  Sender: FDA-Public Use
  Company Number: US-ROCHE-3183519

PATIENT
  Sex: Female

DRUGS (2)
  1. AVASTIN [Suspect]
     Active Substance: BEVACIZUMAB
     Indication: Radiation necrosis
     Dosage: 4-6 MONTHS
     Route: 042
     Dates: start: 20220915
  2. AVASTIN [Suspect]
     Active Substance: BEVACIZUMAB
     Indication: Neoplasm swelling

REACTIONS (3)
  - Off label use [Unknown]
  - Hemianopia homonymous [Not Recovered/Not Resolved]
  - Blindness [Not Recovered/Not Resolved]
